FAERS Safety Report 16583910 (Version 1)
Quarter: 2019Q3

REPORT INFORMATION
  Report Type: Spontaneous
  Country: CN (occurrence: CN)
  Receive Date: 20190717
  Receipt Date: 20190717
  Transmission Date: 20191004
  Serious: Yes (Other)
  Sender: FDA-Public Use
  Company Number: CN-PFIZER INC-2019303392

PATIENT
  Age: 39 Year
  Sex: Female
  Weight: 55 kg

DRUGS (1)
  1. CELEBREX [Suspect]
     Active Substance: CELECOXIB
     Indication: ARTHRALGIA
     Dosage: 1 DF, 1X/DAY
     Route: 048
     Dates: start: 20190710, end: 20190710

REACTIONS (4)
  - Angioedema [Recovered/Resolved]
  - Flushing [Recovered/Resolved]
  - Urticaria [Recovered/Resolved]
  - Mass [Recovered/Resolved]

NARRATIVE: CASE EVENT DATE: 20190710
